FAERS Safety Report 8910811 (Version 1)
Quarter: 2012Q4

REPORT INFORMATION
  Report Type: 
  Country: NO (occurrence: NO)
  Receive Date: 20121115
  Receipt Date: 20121115
  Transmission Date: 20130627
  Serious: Yes (Life-Threatening, Hospitalization)
  Sender: FDA-Public Use
  Company Number: NO-MYLANLABS-2012S1022976

PATIENT
  Age: 8 None

DRUGS (2)
  1. METOPROLOL [Suspect]
     Indication: PRODUCT USED FOR UNKNOWN INDICATION
  2. GABAPENTIN [Suspect]
     Indication: CHEST PAIN
     Dosage: UNK

REACTIONS (7)
  - Myasthenia gravis [Recovered/Resolved]
  - Thymoma [Recovered/Resolved]
  - Haemorrhage [Recovered/Resolved]
  - Pneumothorax [Recovered/Resolved]
  - Chronic obstructive pulmonary disease [Recovered/Resolved]
  - Myocardial infarction [Recovered/Resolved]
  - Pneumonia [Recovered/Resolved]
